FAERS Safety Report 7897838-5 (Version None)
Quarter: 2011Q4

REPORT INFORMATION
  Report Type: 
  Country: None (occurrence: None)
  Receive Date: 20111107
  Receipt Date: 20111103
  Transmission Date: 20120403
  Serious: Yes (Hospitalization)
  Sender: FDA-Public Use
  Company Number: US-BAYER-2011-106565

PATIENT
  Age: 40 Year
  Sex: Male

DRUGS (1)
  1. NAPROXEN SODIUM [Suspect]
     Indication: MIGRAINE
     Dosage: 440 MG, TID
     Route: 048

REACTIONS (2)
  - GASTRIC ULCER PERFORATION [None]
  - GASTRIC FISTULA [None]
